FAERS Safety Report 17187636 (Version 1)
Quarter: 2019Q4

REPORT INFORMATION
  Report Type: Not Available
  Country: US (occurrence: US)
  Receive Date: 20191220
  Receipt Date: 20191220
  Transmission Date: 20200122
  Serious: No
  Sender: FDA-Public Use
  Company Number: US-NEUROCRINE BIOSCIENCES INC.-2019NBI03839

PATIENT
  Age: 67 Year
  Sex: Male

DRUGS (19)
  1. LOSARTAN. [Concomitant]
     Active Substance: LOSARTAN
  2. PHENAZINE [Concomitant]
     Active Substance: PERPHENAZINE
  3. VITAMIN D [Concomitant]
     Active Substance: VITAMIN D NOS
  4. GLIMEPIRIDE. [Concomitant]
     Active Substance: GLIMEPIRIDE
  5. LEVOTHYROXINE. [Concomitant]
     Active Substance: LEVOTHYROXINE
  6. METOPROLOL. [Concomitant]
     Active Substance: METOPROLOL
  7. AMLODIPINE [Concomitant]
     Active Substance: AMLODIPINE BESYLATE
  8. DIVALPROEX [Concomitant]
     Active Substance: DIVALPROEX SODIUM
  9. OMEPRAZOLE. [Concomitant]
     Active Substance: OMEPRAZOLE
  10. ASPIRIN. [Concomitant]
     Active Substance: ASPIRIN
  11. LOVASTATIN. [Concomitant]
     Active Substance: LOVASTATIN
  12. INGREZZA [Suspect]
     Active Substance: VALBENAZINE
     Indication: TARDIVE DYSKINESIA
     Route: 048
     Dates: end: 201911
  13. CLARITIN [Concomitant]
     Active Substance: LORATADINE
  14. DOXAZOSIN [Concomitant]
     Active Substance: DOXAZOSIN MESYLATE
  15. FENOFIBRATE. [Concomitant]
     Active Substance: FENOFIBRATE
  16. VITAMIN C [Concomitant]
     Active Substance: ASCORBIC ACID
  17. GABAPENTIN. [Concomitant]
     Active Substance: GABAPENTIN
  18. SERTRALINE [Concomitant]
     Active Substance: SERTRALINE HYDROCHLORIDE
  19. JANUVIA [Concomitant]
     Active Substance: SITAGLIPTIN PHOSPHATE

REACTIONS (5)
  - Abdominal discomfort [Unknown]
  - Joint stiffness [Unknown]
  - Hyperhidrosis [Unknown]
  - Dyspnoea [Unknown]
  - Asthenia [Unknown]
